FAERS Safety Report 13564495 (Version 3)
Quarter: 2017Q4

REPORT INFORMATION
  Report Type: Spontaneous
  Country: JP (occurrence: JP)
  Receive Date: 20170519
  Receipt Date: 20171120
  Transmission Date: 20180320
  Serious: Yes (Death, Other)
  Sender: FDA-Public Use
  Company Number: JP-009507513-1705JPN001683J

PATIENT
  Age: 73 Year
  Sex: Male
  Weight: 49 kg

DRUGS (3)
  1. LOXOPROFEN [Concomitant]
     Active Substance: LOXOPROFEN
     Indication: LUNG ADENOCARCINOMA STAGE IV
     Dosage: 60.0 MG, TID
     Route: 048
  2. TRAVELMIN [Concomitant]
     Active Substance: DIMENHYDRINATE
     Indication: LUNG ADENOCARCINOMA STAGE IV
     Dosage: 1 DF, TID
     Route: 048
  3. KEYTRUDA [Suspect]
     Active Substance: PEMBROLIZUMAB
     Indication: LUNG ADENOCARCINOMA STAGE IV
     Dosage: 200 MG, Q3W
     Route: 041
     Dates: start: 20170428, end: 20170428

REACTIONS (1)
  - Malignant neoplasm progression [Fatal]

NARRATIVE: CASE EVENT DATE: 20170517
